FAERS Safety Report 14347142 (Version 1)
Quarter: 2018Q1

REPORT INFORMATION
  Report Type: Spontaneous
  Country: FR (occurrence: FR)
  Receive Date: 20180103
  Receipt Date: 20180103
  Transmission Date: 20180509
  Serious: Yes (Hospitalization, Other)
  Sender: FDA-Public Use
  Company Number: FR-PFIZER INC-2017551054

PATIENT
  Age: 68 Year
  Sex: Female
  Weight: 58 kg

DRUGS (4)
  1. ADRIBLASTINE [Suspect]
     Active Substance: DOXORUBICIN
     Indication: HODGKIN^S DISEASE
     Dosage: 45 MG, UNK
     Route: 042
     Dates: start: 20150105, end: 20150703
  2. BLEOMYCIN [Suspect]
     Active Substance: BLEOMYCIN SULFATE
     Indication: HODGKIN^S DISEASE
     Dosage: 17.1 MG, UNK
     Route: 042
     Dates: start: 20150105, end: 20150703
  3. VELBE [Suspect]
     Active Substance: VINBLASTINE SULFATE
     Indication: HODGKIN^S DISEASE
     Dosage: 10 MG, UNK
     Route: 042
     Dates: start: 20150105, end: 20150703
  4. DACARBAZINE. [Suspect]
     Active Substance: DACARBAZINE
     Indication: HODGKIN^S DISEASE
     Dosage: 630 MG, UNK
     Route: 042
     Dates: start: 20150105, end: 20150703

REACTIONS (1)
  - Pulmonary toxicity [Recovered/Resolved with Sequelae]

NARRATIVE: CASE EVENT DATE: 20150703
